FAERS Safety Report 5456792-6 (Version None)
Quarter: 2007Q3

REPORT INFORMATION
  Report Type: 
  Country: None (occurrence: None)
  Receive Date: 20070917
  Receipt Date: 20070917
  Transmission Date: 20080115
  Serious: Yes (Other)
  Sender: FDA-Public Use
  Company Number: None

PATIENT
  Sex: Male

DRUGS (2)
  1. PERCOCET [Suspect]
     Indication: SURGERY
     Dosage: 7.5/325 1/Q6H PRN
     Dates: start: 20070517
  2. VALIUM [Suspect]
     Indication: LUMBAR SPINAL STENOSIS
     Dosage: 5MG 1/Q6H PRN
     Dates: start: 20070522

REACTIONS (2)
  - MENINGEAL NEOPLASM [None]
  - NAUSEA [None]
